FAERS Safety Report 7903431-8 (Version None)
Quarter: 2011Q4

REPORT INFORMATION
  Report Type: 
  Country: None (occurrence: None)
  Receive Date: 20111108
  Receipt Date: 20111108
  Transmission Date: 20120403
  Serious: No
  Sender: FDA-Public Use
  Company Number: None

PATIENT
  Age: 35 Year
  Sex: Male
  Weight: 82.1011 kg

DRUGS (1)
  1. CLONIDINE [Suspect]
     Indication: TOURETTE'S DISORDER
     Dosage: 2 PATCHES WEEKLY TRANSDERMAL
     Route: 062
     Dates: start: 20080101, end: 20090101

REACTIONS (1)
  - DRUG EFFECT DECREASED [None]
